FAERS Safety Report 23665855 (Version 1)
Quarter: 2024Q1

REPORT INFORMATION
  Report Type: Spontaneous
  Country: AU (occurrence: AU)
  Receive Date: 20240323
  Receipt Date: 20240323
  Transmission Date: 20240409
  Serious: Yes (Hospitalization, Other)
  Sender: FDA-Public Use
  Company Number: AU-BAXTER-2024BAX014485

PATIENT
  Age: 81 Year
  Sex: Male

DRUGS (7)
  1. SODIUM CHLORIDE [Suspect]
     Active Substance: SODIUM CHLORIDE
     Indication: Medication dilution
     Dosage: UNK
     Route: 042
     Dates: start: 20240228, end: 20240228
  2. SODIUM CHLORIDE [Suspect]
     Active Substance: SODIUM CHLORIDE
     Dosage: UNK
     Route: 042
     Dates: start: 20240306
  3. OBINUTUZUMAB [Suspect]
     Active Substance: OBINUTUZUMAB
     Indication: Lymphocytic leukaemia
     Dosage: 100 MG AT AN UNSPECIFIED FREQUENCY (MAH: ROCHE)
     Route: 042
     Dates: start: 20240228, end: 20240228
  4. OBINUTUZUMAB [Suspect]
     Active Substance: OBINUTUZUMAB
     Dosage: 100 MG AT AN UNSPECIFIED FREQUENCY
     Route: 042
     Dates: start: 20240306
  5. ACETAMINOPHEN [Concomitant]
     Active Substance: ACETAMINOPHEN
     Dosage: 1000 MG AT AN UNSPECIFIED FREQUENCY
     Route: 048
  6. LORATADINE [Concomitant]
     Active Substance: LORATADINE
     Dosage: 10 MG AT AN UNSPECIFIED FREQUENCY
     Route: 048
  7. DEXAMETHASONE [Concomitant]
     Active Substance: DEXAMETHASONE
     Dosage: 20 MG AT AN UNSPECIFIED FREQUENCY
     Route: 048

REACTIONS (2)
  - Atrial fibrillation [Recovered/Resolved]
  - Heart rate abnormal [Unknown]

NARRATIVE: CASE EVENT DATE: 20240228
